FAERS Safety Report 14456662 (Version 2)
Quarter: 2018Q1

REPORT INFORMATION
  Report Type: Report from Study
  Country: US (occurrence: US)
  Receive Date: 20180130
  Receipt Date: 20180131
  Transmission Date: 20180509
  Serious: Yes (Other)
  Sender: FDA-Public Use
  Company Number: US-TEVA-2018-US-853970

PATIENT
  Age: 51 Year
  Sex: Male

DRUGS (2)
  1. AUSTEDO [Suspect]
     Active Substance: DEUTETRABENAZINE
     Indication: TARDIVE DYSKINESIA
     Dosage: 24 MILLIGRAM DAILY;
     Route: 065
     Dates: start: 20180105, end: 20180122
  2. CLOZARIL [Concomitant]
     Active Substance: CLOZAPINE

REACTIONS (6)
  - Dyspnoea [Unknown]
  - Diarrhoea [Unknown]
  - Choking [Unknown]
  - Throat tightness [Unknown]
  - Abdominal pain upper [Unknown]
  - Retching [Unknown]

NARRATIVE: CASE EVENT DATE: 20180120
